FAERS Safety Report 15023364 (Version 1)
Quarter: 2018Q2

REPORT INFORMATION
  Report Type: Spontaneous
  Country: DE (occurrence: DE)
  Receive Date: 20180618
  Receipt Date: 20180618
  Transmission Date: 20180711
  Serious: Yes (Hospitalization)
  Sender: FDA-Public Use
  Company Number: DE-TEVA-2018-DE-908694

PATIENT
  Age: 80 Year
  Sex: Female

DRUGS (8)
  1. VIANI [Concomitant]
     Active Substance: FLUTICASONE PROPIONATE\SALMETEROL XINAFOATE
     Route: 065
  2. LEVOCARB 25MG/250MG [Concomitant]
     Dosage: 250|25 MG, 0-0-1-0
     Route: 065
  3. THEOPHYLLINE [Concomitant]
     Active Substance: THEOPHYLLINE ANHYDROUS
  4. SPIRIVA [Concomitant]
     Active Substance: TIOTROPIUM BROMIDE MONOHYDRATE
     Route: 065
  5. ALENDRONSAEURE [Suspect]
     Active Substance: ALENDRONATE SODIUM
     Route: 065
  6. PANTOPRAZOL [Concomitant]
     Active Substance: PANTOPRAZOLE SODIUM
     Dosage: 20 MG, 1-0-1-0
  7. METAMIZOL [Concomitant]
     Active Substance: METAMIZOLE SODIUM
  8. CALCIUMCARBONAT/COLECALCIFEROL [Concomitant]
     Route: 065

REACTIONS (2)
  - Nausea [Unknown]
  - Haematemesis [Unknown]
